FAERS Safety Report 16208947 (Version 2)
Quarter: 2019Q2

REPORT INFORMATION
  Report Type: Spontaneous
  Country: US (occurrence: US)
  Receive Date: 20190417
  Receipt Date: 20190514
  Transmission Date: 20190711
  Serious: No
  Sender: FDA-Public Use
  Company Number: US-BIOGEN-2019BI00724391

PATIENT
  Sex: Male

DRUGS (10)
  1. LISINOPRIL. [Concomitant]
     Active Substance: LISINOPRIL
     Route: 065
  2. ASPIRIN. [Concomitant]
     Active Substance: ASPIRIN
     Route: 065
  3. ATENOLOL. [Concomitant]
     Active Substance: ATENOLOL
     Route: 065
  4. TECFIDERA [Suspect]
     Active Substance: DIMETHYL FUMARATE
     Indication: MULTIPLE SCLEROSIS
     Dosage: TAKE 1 CAPSULE BY MOUTH TWICE A DAY
     Route: 048
  5. VITAMIN D3 [Concomitant]
     Active Substance: CHOLECALCIFEROL
     Route: 065
  6. GABAPENTIN. [Concomitant]
     Active Substance: GABAPENTIN
     Route: 065
  7. NORTRIPTYLINE HCL [Concomitant]
     Active Substance: NORTRIPTYLINE HYDROCHLORIDE
     Route: 065
  8. TRAMADOL HCL [Concomitant]
     Active Substance: TRAMADOL HYDROCHLORIDE
     Route: 065
  9. OXYCODONE HYDROCHLORIDE. [Concomitant]
     Active Substance: OXYCODONE HYDROCHLORIDE
     Route: 065
  10. XARELTO [Concomitant]
     Active Substance: RIVAROXABAN
     Route: 065

REACTIONS (4)
  - Muscular weakness [Not Recovered/Not Resolved]
  - Multiple sclerosis [Unknown]
  - Malaise [Unknown]
  - Balance disorder [Not Recovered/Not Resolved]
